FAERS Safety Report 10700336 (Version 1)
Quarter: 2015Q1

REPORT INFORMATION
  Report Type: Spontaneous
  Country: US (occurrence: None)
  Receive Date: 20150108
  Receipt Date: 20150108
  Transmission Date: 20150721
  Serious: Yes (Hospitalization)
  Sender: FDA-Public Use
  Company Number: None

PATIENT
  Age: 65 Year
  Sex: Female
  Weight: 62 kg

DRUGS (19)
  1. NEPHRO-VITE [Concomitant]
  2. CARVEDILOL. [Concomitant]
     Active Substance: CARVEDILOL
  3. HYDROXYZINE [Concomitant]
     Active Substance: HYDROXYZINE\HYDROXYZINE HYDROCHLORIDE
  4. OMEPRAZOLE. [Concomitant]
     Active Substance: OMEPRAZOLE
  5. RENVELA [Concomitant]
     Active Substance: SEVELAMER CARBONATE
  6. ASPIRIN. [Concomitant]
     Active Substance: ASPIRIN
  7. DARBEPOETIN [Concomitant]
     Active Substance: DARBEPOETIN ALFA
  8. SENNA [Concomitant]
     Active Substance: SENNA LEAF\SENNOSIDES\SENNOSIDES A AND B
  9. ERGOCALCIFEROL. [Concomitant]
     Active Substance: ERGOCALCIFEROL
  10. MIRALAX POWDER [Concomitant]
  11. DOCUSATE [Concomitant]
     Active Substance: DOCUSATE
  12. FLUTICASONE NASAL SPRAY [Concomitant]
     Active Substance: FLUTICASONE\FLUTICASONE PROPIONATE
  13. APIXABAN [Suspect]
     Active Substance: APIXABAN
     Indication: DEEP VEIN THROMBOSIS
     Route: 048
     Dates: start: 20141230, end: 20150106
  14. DIPHENHYDRAMINE [Concomitant]
     Active Substance: DIPHENHYDRAMINE
  15. ISOSORBIDE [Concomitant]
     Active Substance: ISOSORBIDE
  16. MIDODRINE [Concomitant]
     Active Substance: MIDODRINE
  17. SYMBICORT [Concomitant]
     Active Substance: BUDESONIDE\FORMOTEROL FUMARATE DIHYDRATE
  18. GABAPENTIN. [Concomitant]
     Active Substance: GABAPENTIN
  19. LOSARTAN [Concomitant]
     Active Substance: LOSARTAN

REACTIONS (1)
  - Arteriovenous fistula site haemorrhage [None]

NARRATIVE: CASE EVENT DATE: 20150106
